FAERS Safety Report 9225729 (Version 1)
Quarter: 2013Q1

REPORT INFORMATION
  Report Type: Spontaneous
  Country: US (occurrence: None)
  Receive Date: 20120914
  Receipt Date: 20120914
  Transmission Date: 20140127
  Serious: Yes (Other)
  Sender: FDA-Public Use
  Company Number: JPI-P-017444

PATIENT
  Age: 76 Year
  Sex: Female
  Weight: 57.61 kg

DRUGS (4)
  1. XYREM (500 MILLIGRAM/MILLILITERS, SOLUTION) (SODIUM OXYBATE) [Suspect]
     Indication: NARCOLEPSY
     Route: 048
  2. TRIAMTERENE [Suspect]
     Indication: HYPERTENSION
     Dates: start: 20110930
  3. METHYLPHENIDATE [Concomitant]
  4. THYROID HORMONE [Concomitant]

REACTIONS (3)
  - Hypertension [None]
  - Blood thyroid stimulating hormone decreased [None]
  - Sluggishness [None]
